FAERS Safety Report 5363198-7 (Version None)
Quarter: 2007Q2

REPORT INFORMATION
  Report Type: 
  Country: None (occurrence: None)
  Receive Date: 20070620
  Receipt Date: 20070615
  Transmission Date: 20071010
  Serious: Yes (Death, Other)
  Sender: FDA-Public Use
  Company Number: PHHO2005CN21016

PATIENT
  Age: 68 Year
  Sex: Male

DRUGS (1)
  1. GLEEVEC [Suspect]
     Indication: CHRONIC MYELOID LEUKAEMIA
     Route: 048
     Dates: start: 20050216

REACTIONS (7)
  - BLOOD COUNT ABNORMAL [None]
  - DYSPNOEA [None]
  - HAEMOGLOBIN DECREASED [None]
  - MALIGNANT NEOPLASM PROGRESSION [None]
  - NASOPHARYNGITIS [None]
  - PERICARDIAL EFFUSION [None]
  - WHITE BLOOD CELL COUNT DECREASED [None]
